FAERS Safety Report 7982544-9 (Version None)
Quarter: 2011Q4

REPORT INFORMATION
  Report Type: 
  Country: None (occurrence: None)
  Receive Date: 20111215
  Receipt Date: 20111213
  Transmission Date: 20120403
  Serious: Yes (Hospitalization, Other)
  Sender: FDA-Public Use
  Company Number: US-TEVA-313317USA

PATIENT
  Sex: Male

DRUGS (2)
  1. TYLENOL PM                         /01088101/ [Suspect]
  2. CLARAVIS [Suspect]
     Route: 048

REACTIONS (3)
  - OVERDOSE [None]
  - PRURITUS [None]
  - RASH [None]
